FAERS Safety Report 6419582-3 (Version None)
Quarter: 2009Q4

REPORT INFORMATION
  Report Type: 
  Country: None (occurrence: None)
  Receive Date: 20091013
  Receipt Date: 20090115
  Transmission Date: 20100525
  Serious: Yes (Hospitalization)
  Sender: FDA-Public Use
  Company Number: 1000003458

PATIENT
  Age: 64 Year
  Sex: Male

DRUGS (5)
  1. LEXAPRO [Suspect]
     Indication: DEPRESSION
     Dosage: 10 MG (10 MG, 1 IN 1 D), ORAL
     Route: 048
     Dates: start: 20081101
  2. TOPROL-XL [Concomitant]
  3. CADUET [Concomitant]
  4. NEURONTIN [Concomitant]
  5. PROTONIX [Concomitant]

REACTIONS (1)
  - ATRIAL FIBRILLATION [None]
